FAERS Safety Report 14499210 (Version 1)
Quarter: 2018Q1

REPORT INFORMATION
  Report Type: Spontaneous
  Country: US (occurrence: US)
  Receive Date: 20180207
  Receipt Date: 20180207
  Transmission Date: 20180509
  Serious: No
  Sender: FDA-Public Use
  Company Number: US-JAZZ-2017-US-006041

PATIENT
  Sex: Female

DRUGS (2)
  1. PRIALT [Suspect]
     Active Substance: ZICONOTIDE ACETATE
     Indication: PRODUCT USED FOR UNKNOWN INDICATION
     Dosage: UNDILUTED 25?G/ML
     Route: 037
     Dates: start: 2012, end: 201704
  2. PRIALT [Suspect]
     Active Substance: ZICONOTIDE ACETATE
     Dosage: DILUTED 100MG/ML
     Route: 037
     Dates: start: 201704

REACTIONS (1)
  - Hallucination, auditory [Unknown]

NARRATIVE: CASE EVENT DATE: 201704
